FAERS Safety Report 12090129 (Version 2)
Quarter: 2016Q2

REPORT INFORMATION
  Report Type: Spontaneous
  Country: GR (occurrence: GR)
  Receive Date: 20160218
  Receipt Date: 20160513
  Transmission Date: 20160815
  Serious: Yes (Death, Hospitalization, Other)
  Sender: FDA-Public Use
  Company Number: GR-009507513-1602GRC007091

PATIENT
  Age: 70 Year
  Sex: Male
  Weight: 94 kg

DRUGS (17)
  1. COVERAM [Concomitant]
     Active Substance: AMLODIPINE\PERINDOPRIL
     Route: 048
  2. KEYTRUDA [Suspect]
     Active Substance: PEMBROLIZUMAB
     Indication: NON-SMALL CELL LUNG CANCER METASTATIC
     Dosage: 2 MG/KG, Q21D, 1ST CYCLE OF ADMINISTRATION
     Route: 042
     Dates: start: 20151207, end: 20151228
  3. FENISTIL [Concomitant]
     Active Substance: DIMETHINDENE
     Route: 042
  4. OMACOR [Concomitant]
     Active Substance: OMEGA-3-ACID ETHYL ESTERS
     Route: 048
  5. OMEPRAZOLE. [Concomitant]
     Active Substance: OMEPRAZOLE
  6. CLOPIDOGREL [Concomitant]
     Active Substance: CLOPIDOGREL BISULFATE
     Route: 048
  7. KEPPRA [Concomitant]
     Active Substance: LEVETIRACETAM
     Route: 048
  8. SOLOSA [Concomitant]
     Active Substance: GLIMEPIRIDE
     Route: 048
  9. OMNIC TOCAS [Concomitant]
     Route: 048
  10. KEYTRUDA [Suspect]
     Active Substance: PEMBROLIZUMAB
     Dosage: 2ND CYCLE OF ADMINISTRATION
     Route: 042
     Dates: start: 20151228, end: 20151228
  11. APOTEL [Concomitant]
     Active Substance: ACETAMINOPHEN
     Route: 042
  12. SALOSPIR [Concomitant]
     Active Substance: ASPIRIN
     Route: 048
  13. GLUCOPHAGE [Concomitant]
     Active Substance: METFORMIN HYDROCHLORIDE
     Route: 048
  14. LYRICA [Concomitant]
     Active Substance: PREGABALIN
     Route: 048
  15. MAGNESIUM (UNSPECIFIED) [Concomitant]
     Active Substance: MAGNESIUM
  16. GALVUS [Concomitant]
     Active Substance: VILDAGLIPTIN
     Route: 048
  17. ZYLAPOUR [Concomitant]
     Route: 048

REACTIONS (3)
  - Myocardial ischaemia [Unknown]
  - Off label use [Unknown]
  - Autoimmune myocarditis [Fatal]

NARRATIVE: CASE EVENT DATE: 20151207
